FAERS Safety Report 8952758 (Version 1)
Quarter: 2012Q4

REPORT INFORMATION
  Report Type: 
  Country: FR (occurrence: US)
  Receive Date: 20121205
  Receipt Date: 20121205
  Transmission Date: 20130627
  Serious: Yes (Other)
  Sender: FDA-Public Use
  Company Number: US-BRISTOL-MYERS SQUIBB COMPANY-17156993

PATIENT
  Age: 62 Year
  Sex: Male
  Weight: 88.43 kg

DRUGS (10)
  1. SPRYCEL [Suspect]
     Indication: CHRONIC MYELOID LEUKAEMIA
     Dosage: stopped on 30Oct12 rest on 29Nv12 50mg
     Route: 048
     Dates: start: 20121016
  2. ACETYLSALICYLIC ACID [Concomitant]
  3. CASODEX [Concomitant]
  4. DIOVAN [Concomitant]
  5. LANTUS [Concomitant]
  6. LISINOPRIL [Concomitant]
  7. LOVASTATIN [Concomitant]
  8. METOPROLOL [Concomitant]
  9. OMEPRAZOLE [Concomitant]
  10. PLAVIX [Concomitant]

REACTIONS (2)
  - Pulmonary oedema [Unknown]
  - Bone marrow oedema [Unknown]
